FAERS Safety Report 10162870 (Version 1)
Quarter: 2014Q2

REPORT INFORMATION
  Report Type: Spontaneous
  Country: BR (occurrence: BR)
  Receive Date: 20140509
  Receipt Date: 20140509
  Transmission Date: 20141212
  Serious: Yes (Hospitalization)
  Sender: FDA-Public Use
  Company Number: BR-ASTRAZENECA-2014SE30450

PATIENT
  Age: 74 Year
  Sex: Female
  Weight: 50 kg

DRUGS (9)
  1. SELOZOK [Suspect]
     Indication: HYPERTENSION
     Route: 048
     Dates: start: 2009
  2. OMEPRAZOLE [Suspect]
     Indication: GASTRIC DISORDER
     Dosage: DAILY
     Route: 048
     Dates: start: 2012
  3. ROSUVASTATIN [Suspect]
     Indication: BLOOD CHOLESTEROL INCREASED
     Dosage: (EMS MANUFACTURER), 10 MG DAILY
     Route: 048
     Dates: end: 201403
  4. ROSUVASTATIN [Suspect]
     Indication: BLOOD CHOLESTEROL INCREASED
     Route: 048
     Dates: start: 201403
  5. UNKNOWN [Concomitant]
     Indication: OSTEOPOROSIS
     Route: 048
     Dates: start: 2009
  6. GINKGO BILOBA [Concomitant]
     Indication: ANGIOPATHY
     Route: 048
  7. SIMVASTATIN [Concomitant]
     Indication: BLOOD CHOLESTEROL INCREASED
     Route: 048
     Dates: start: 2012
  8. ASPIRINA PREVENT [Concomitant]
     Indication: ISCHAEMIC HEART DISEASE PROPHYLAXIS
     Route: 048
     Dates: start: 2012
  9. ISORDIL [Concomitant]
     Indication: ISCHAEMIC HEART DISEASE PROPHYLAXIS
     Route: 048
     Dates: start: 2012

REACTIONS (5)
  - Coronary artery occlusion [Recovered/Resolved]
  - Blood cholesterol increased [Not Recovered/Not Resolved]
  - Blood glucose increased [Recovered/Resolved]
  - Dysuria [Not Recovered/Not Resolved]
  - Weight decreased [Not Recovered/Not Resolved]
